FAERS Safety Report 4298454-7 (Version None)
Quarter: 2004Q1

REPORT INFORMATION
  Report Type: 
  Country: None (occurrence: None)
  Receive Date: 20040218
  Receipt Date: 20030730
  Transmission Date: 20041129
  Serious: Yes (Other)
  Sender: FDA-Public Use
  Company Number: US-BRISTOL-MYERS SQUIBB COMPANY-12350708

PATIENT
  Age: 34 Year
  Sex: Female

DRUGS (5)
  1. STADOL [Suspect]
     Indication: MIGRAINE
     Dosage: THERAPY DATES 1998 OR 1998 TO 2001/ 1 1/2 TO 2 YEARS.
     Route: 045
     Dates: end: 20000101
  2. AMBIEN [Concomitant]
  3. PROMETHAZINE HCL [Concomitant]
  4. CYCLOBENZAPRINE [Concomitant]
  5. TEMAZEPAM [Concomitant]

REACTIONS (1)
  - DEPENDENCE [None]
